FAERS Safety Report 10373729 (Version 1)
Quarter: 2014Q1

REPORT INFORMATION
  Report Type: Spontaneous
  Country: US (occurrence: None)
  Receive Date: 20140306
  Receipt Date: 20140306
  Transmission Date: 20141002
  Serious: Yes (Other)
  Sender: FDA-Public Use
  Company Number: 163-21880-13072178

PATIENT
  Age: 73 Year
  Sex: Male
  Weight: 102.06 kg

DRUGS (3)
  1. REVLIMID (LENALIDOMIDE) (25 MILLIGRAM, CAPSULES) [Suspect]
     Indication: PLASMA CELL MYELOMA
     Route: 048
     Dates: start: 201106
  2. ZOMETA (ZOLEDORNIC ACID) [Concomitant]
  3. LORITAB (VICODIN) [Concomitant]

REACTIONS (8)
  - Pulmonary thrombosis [None]
  - Weight increased [None]
  - Platelet count decreased [None]
  - Asthenia [None]
  - Diarrhoea [None]
  - Abdominal pain upper [None]
  - Neck pain [None]
  - Hypoaesthesia [None]
